FAERS Safety Report 24027404 (Version 3)
Quarter: 2024Q3

REPORT INFORMATION
  Report Type: Report from Study
  Country: PK (occurrence: PK)
  Receive Date: 20240628
  Receipt Date: 20240722
  Transmission Date: 20241016
  Serious: Yes (Other)
  Sender: ROCHE
  Company Number: PK-ROCHE-10000008136

PATIENT
  Age: 61 Year
  Sex: Female

DRUGS (2)
  1. PERJETA [Suspect]
     Active Substance: PERTUZUMAB
     Indication: Breast cancer
     Route: 042
     Dates: start: 20211204
  2. HERCEPTIN [Suspect]
     Active Substance: TRASTUZUMAB
     Indication: Breast cancer
     Route: 042
     Dates: start: 20211204

REACTIONS (1)
  - Breast cancer metastatic [Unknown]

NARRATIVE: CASE EVENT DATE: 20240613
